FAERS Safety Report 6178952-1 (Version None)
Quarter: 2009Q2

REPORT INFORMATION
  Report Type: 
  Country: None (occurrence: None)
  Receive Date: 20090505
  Receipt Date: 20090429
  Transmission Date: 20091009
  Serious: No
  Sender: FDA-Public Use
  Company Number: US-JNJFOC-20090500140

PATIENT
  Sex: Female
  Weight: 51.26 kg

DRUGS (3)
  1. DURAGESIC-100 [Suspect]
  2. DURAGESIC-100 [Suspect]
     Indication: PAIN
  3. NORCO [Concomitant]
     Indication: PAIN
     Dosage: 10/325 MG AS NEEDED
     Route: 048

REACTIONS (2)
  - LARYNGITIS [None]
  - WRONG TECHNIQUE IN DRUG USAGE PROCESS [None]
